FAERS Safety Report 10240952 (Version 1)
Quarter: 2014Q2

REPORT INFORMATION
  Report Type: Spontaneous
  Country: ES (occurrence: ES)
  Receive Date: 20140617
  Receipt Date: 20140617
  Transmission Date: 20141212
  Serious: Yes (Death, Other)
  Sender: FDA-Public Use
  Company Number: ES-009507513-1406ESP004201

PATIENT
  Age: 39 Year
  Sex: Male

DRUGS (8)
  1. IMIPENEM (+) CILASTATIN SODIUM [Suspect]
     Indication: PANCREATITIS
     Dosage: 500 MG, TID (500 MG/8H)
     Route: 042
     Dates: start: 20130215, end: 201302
  2. OMEPRAZOLE [Concomitant]
     Dosage: 20 MG DAILY
     Route: 048
  3. ALPRAZOLAM [Concomitant]
     Dosage: 2 MG: 4/DAY
  4. MIRTAZAPINE [Concomitant]
     Dosage: 15 MG DAILY
     Route: 048
  5. METHADONE HYDROCHLORIDE [Concomitant]
     Dosage: 100 MG DAILY
  6. SEPTRIN FORTE [Concomitant]
     Dosage: 160/800 MG 3 TIMES/WEEK
  7. FLUCONAZOLE [Concomitant]
     Dosage: 100 MG/24H
     Route: 042
     Dates: start: 20130214, end: 201302
  8. MEPERIDINE HYDROCHLORIDE [Concomitant]

REACTIONS (29)
  - Death [Fatal]
  - Convulsion [Recovered/Resolved]
  - Multi-organ failure [Unknown]
  - Pancreatitis [Unknown]
  - Splenic vein thrombosis [Unknown]
  - Splenic infarction [Unknown]
  - Splenic artery thrombosis [Unknown]
  - Large intestine perforation [Unknown]
  - Pain [Unknown]
  - Abdominal distension [Unknown]
  - Peristalsis visible [Unknown]
  - Periportal oedema [Unknown]
  - Intestinal dilatation [Unknown]
  - Back pain [Unknown]
  - Hypotension [Unknown]
  - Metabolic acidosis [Unknown]
  - Gastrointestinal disorder [Unknown]
  - Renal disorder [Unknown]
  - Surgery [Unknown]
  - Abscess drainage [Unknown]
  - Hypotension [Unknown]
  - Thrombocytopenia [Unknown]
  - Anaemia [Unknown]
  - Renal impairment [Unknown]
  - White blood cell count increased [Unknown]
  - Oliguria [Unknown]
  - Oliguria [Unknown]
  - Coagulopathy [Unknown]
  - Peripancreatic fluid collection [Unknown]
